FAERS Safety Report 6614343-4 (Version None)
Quarter: 2010Q1

REPORT INFORMATION
  Report Type: 
  Country: None (occurrence: None)
  Receive Date: 20100304
  Receipt Date: 20100118
  Transmission Date: 20100710
  Serious: Yes (Hospitalization, Other)
  Sender: FDA-Public Use
  Company Number: US-BAXTER-2009BH011000

PATIENT
  Age: 45 Year
  Sex: Male
  Weight: 102 kg

DRUGS (8)
  1. HEPARIN SODIUM INJECTION [Suspect]
     Indication: CORONARY ARTERY BYPASS
     Route: 042
     Dates: start: 20080124
  2. HEPARIN SODIUM INJECTION [Suspect]
     Indication: DRUG USE FOR UNKNOWN INDICATION
     Route: 042
     Dates: start: 20080124
  3. HEPARIN SODIUM INJECTION [Suspect]
     Route: 058
     Dates: end: 20080130
  4. HEPARIN SODIUM INJECTION [Suspect]
     Route: 058
     Dates: end: 20080130
  5. HEPARIN SODIUM INJECTION [Suspect]
     Route: 041
     Dates: start: 20080131, end: 20080204
  6. HEPARIN SODIUM INJECTION [Suspect]
     Route: 041
     Dates: start: 20080131, end: 20080204
  7. HEPARIN SODIUM INJECTION [Suspect]
     Route: 040
     Dates: start: 20080131
  8. HEPARIN SODIUM INJECTION [Suspect]
     Route: 040
     Dates: start: 20080131

REACTIONS (15)
  - ACUTE RESPIRATORY FAILURE [None]
  - ANAEMIA [None]
  - ATRIAL FIBRILLATION [None]
  - ATRIAL FLUTTER [None]
  - BRONCHOSPASM [None]
  - CARDIOGENIC SHOCK [None]
  - DRUG HYPERSENSITIVITY [None]
  - HYPERGLYCAEMIA [None]
  - HYPOTENSION [None]
  - MALNUTRITION [None]
  - PNEUMONIA [None]
  - RENAL FAILURE ACUTE [None]
  - SEPSIS [None]
  - THROMBOCYTOPENIA [None]
  - VENTRICULAR TACHYCARDIA [None]
